FAERS Safety Report 10076166 (Version 1)
Quarter: 2014Q2

REPORT INFORMATION
  Report Type: Spontaneous
  Country: FR (occurrence: FR)
  Receive Date: 20140414
  Receipt Date: 20140414
  Transmission Date: 20141212
  Serious: Yes (Hospitalization)
  Sender: FDA-Public Use
  Company Number: FR-SA-2014SA041617

PATIENT
  Age: 56 Year
  Sex: Female

DRUGS (13)
  1. LOVENOX [Suspect]
     Indication: PROPHYLAXIS
     Route: 058
     Dates: start: 20131214
  2. LOVENOX [Suspect]
     Indication: PROPHYLAXIS
     Route: 058
     Dates: start: 20140103, end: 20140109
  3. LOVENOX [Suspect]
     Indication: PROPHYLAXIS
     Route: 058
     Dates: start: 20140111, end: 20140113
  4. PAROXETINE HYDROCHLORIDE [Suspect]
     Indication: PRODUCT USED FOR UNKNOWN INDICATION
     Dosage: PAROXETINE ARROW 20 MG TABLET
     Route: 048
     Dates: end: 20140131
  5. TEMOZOLOMIDE [Suspect]
     Indication: GLIOBLASTOMA
     Route: 048
     Dates: start: 20131209, end: 20140109
  6. BACTRIM FORTE [Suspect]
     Indication: PRODUCT USED FOR UNKNOWN INDICATION
     Route: 048
     Dates: start: 20140103, end: 20140119
  7. INEXIUM [Concomitant]
  8. LEVOTHYROXINE [Concomitant]
  9. MOVICOL [Concomitant]
  10. DAFALGAN [Concomitant]
  11. BACTRIM [Concomitant]
  12. CORTANCYL [Concomitant]
  13. LOSARTAN [Concomitant]
     Dates: start: 20131209

REACTIONS (1)
  - Pancytopenia [Unknown]
